FAERS Safety Report 21787670 (Version 1)
Quarter: 2022Q4

REPORT INFORMATION
  Report Type: Spontaneous
  Country: US (occurrence: US)
  Receive Date: 20221228
  Receipt Date: 20221228
  Transmission Date: 20230113
  Serious: Yes (Other)
  Sender: FDA-Public Use
  Company Number: US-Axellia-004536

PATIENT
  Sex: Male

DRUGS (1)
  1. VANCOMYCIN [Suspect]
     Active Substance: VANCOMYCIN
     Indication: Product used for unknown indication
     Dosage: TREATED IN AUG-2022, AGAIN IN SEP-2022 AND JUST FINISHED FOURTH COURSE OF VANCOMYCIN IN DEC-2022

REACTIONS (1)
  - Clostridium difficile infection [Unknown]
